FAERS Safety Report 9272781 (Version 1)
Quarter: 2013Q2

REPORT INFORMATION
  Report Type: Spontaneous
  Country: US (occurrence: US)
  Receive Date: 20130506
  Receipt Date: 20130506
  Transmission Date: 20140414
  Serious: No
  Sender: FDA-Public Use
  Company Number: US-ASTRAZENECA-2012SE37323

PATIENT
  Age: 82 Year
  Sex: Female

DRUGS (5)
  1. PRILOSEC OTC [Suspect]
     Route: 048
     Dates: start: 20120527, end: 20120527
  2. HYDROCODONE [Concomitant]
     Dosage: UNKNOWN
  3. TYLENOL [Concomitant]
     Dosage: UNKNOWN
  4. LOPRESOR [Concomitant]
     Dosage: UNKNOWN
  5. SIMVASTATIN [Concomitant]
     Dosage: UNKNOWN

REACTIONS (7)
  - Palpitations [Recovered/Resolved]
  - Hot flush [Recovered/Resolved]
  - Throat irritation [Recovered/Resolved]
  - Hyperhidrosis [Recovered/Resolved]
  - Pruritus generalised [Recovered/Resolved]
  - Lip swelling [Recovered/Resolved]
  - Swollen tongue [Recovered/Resolved]
